FAERS Safety Report 21087869 (Version 2)
Quarter: 2022Q4

REPORT INFORMATION
  Report Type: Spontaneous
  Country: TR (occurrence: TR)
  Receive Date: 20220715
  Receipt Date: 20221109
  Transmission Date: 20230113
  Serious: Yes (Hospitalization, Other)
  Sender: FDA-Public Use
  Company Number: TR-BAYER-2022A094518

PATIENT
  Age: 69 Year
  Sex: Male

DRUGS (3)
  1. RIVAROXABAN [Suspect]
     Active Substance: RIVAROXABAN
     Indication: Varicose vein
     Dosage: 20 MG,?XARELTO 20 MG
     Route: 048
  2. RIVAROXABAN [Suspect]
     Active Substance: RIVAROXABAN
     Dosage: XARELTO,?30 MG.
     Route: 048
     Dates: start: 2022, end: 202206
  3. ASPIRIN [Suspect]
     Active Substance: ASPIRIN
     Indication: Product used for unknown indication
     Dosage: UNK
     Route: 065

REACTIONS (6)
  - Thrombosis [Unknown]
  - Off label use [Unknown]
  - Drug ineffective [Unknown]
  - COVID-19 [Recovered/Resolved]
  - Fibrin D dimer increased [Unknown]
  - Thrombosis [Unknown]

NARRATIVE: CASE EVENT DATE: 20220101
